FAERS Safety Report 7005468-2 (Version None)
Quarter: 2010Q3

REPORT INFORMATION
  Report Type: 
  Country: None (occurrence: None)
  Receive Date: 20100917
  Receipt Date: 20100903
  Transmission Date: 20110219
  Serious: Yes (Death)
  Sender: FDA-Public Use
  Company Number: 1000016259

PATIENT
  Sex: Male
  Weight: 3.5 kg

DRUGS (1)
  1. DINOPROSTONE (DINOPROSTONE) (10 MILLIGRAM, VAGINAL INSERT) [Suspect]
     Dosage: 10 MG (10 MG), TRANSPLACENTAL
     Route: 064
     Dates: start: 20100902, end: 20100902

REACTIONS (3)
  - CAESAREAN SECTION [None]
  - DEATH NEONATAL [None]
  - MATERNAL DRUGS AFFECTING FOETUS [None]
